FAERS Safety Report 15364712 (Version 1)
Quarter: 2018Q3

REPORT INFORMATION
  Report Type: Other
  Country: NL (occurrence: NL)
  Receive Date: 20180910
  Receipt Date: 20180910
  Transmission Date: 20181010
  Serious: Yes (Hospitalization)
  Sender: FDA-Public Use
  Company Number: NL-APOTEX-2018AP020177

PATIENT
  Age: 40 Year
  Sex: Male
  Weight: 104 kg

DRUGS (6)
  1. OXYCODONE [Interacting]
     Active Substance: OXYCODONE
     Indication: PROCEDURAL PAIN
     Dosage: 10 MG, UNK (INDIEN NODIG RETARD 10 MG 2 X DAAGS)
     Route: 065
     Dates: start: 20171008, end: 20171107
  2. OXYCODON [Interacting]
     Active Substance: OXYCODONE
     Indication: PROCEDURAL PAIN
     Dosage: 5 MG, INDIEN NODIG 4 X DAAGS
     Route: 065
     Dates: start: 20171008, end: 20171107
  3. METHYLPHENIDATE. [Concomitant]
     Active Substance: METHYLPHENIDATE
     Indication: PRODUCT USED FOR UNKNOWN INDICATION
     Dosage: 10 MG, ONCE EVERY EIGHT HOURS (3 X DAAGS)
     Route: 065
  4. PROPRANOL [Concomitant]
     Active Substance: PROPRANOLOL HYDROCHLORIDE
     Indication: PRODUCT USED FOR UNKNOWN INDICATION
     Dosage: 40 MG, ONCE EVERY EIGHT HOURS (3 X DAAGS)
     Route: 065
  5. GABAPENTIN. [Suspect]
     Active Substance: GABAPENTIN
     Indication: NEUROPATHY PERIPHERAL
     Dosage: 200 MG, ONCE EVERY 8 HOURS (3 X DAAGS 2 CAPSULES)
     Route: 065
     Dates: start: 20160101
  6. DULOXETINE. [Concomitant]
     Active Substance: DULOXETINE
     Indication: PRODUCT USED FOR UNKNOWN INDICATION
     Dosage: 2 DF, 2 PER DAG (2 PER DAY)
     Route: 065

REACTIONS (5)
  - Confusional state [Recovering/Resolving]
  - Drug interaction [Unknown]
  - Muscle spasms [Recovering/Resolving]
  - Visual impairment [Recovering/Resolving]
  - Trismus [Recovering/Resolving]

NARRATIVE: CASE EVENT DATE: 20171106
